FAERS Safety Report 9712646 (Version 1)
Quarter: 2013Q4

REPORT INFORMATION
  Report Type: Report from Study
  Country: DE (occurrence: DE)
  Receive Date: 20131126
  Receipt Date: 20131126
  Transmission Date: 20140711
  Serious: Yes (Hospitalization)
  Sender: FDA-Public Use
  Company Number: DE-ABBVIE-13P-062-1172902-00

PATIENT
  Age: 43 Year
  Sex: Female
  Weight: 83 kg

DRUGS (6)
  1. HUMIRA [Suspect]
     Indication: CROHN^S DISEASE
     Route: 058
     Dates: start: 20101103, end: 201310
  2. HUMIRA [Suspect]
     Dates: start: 201311
  3. SULFASALAZINE [Concomitant]
     Indication: CROHN^S DISEASE
  4. PREDNISOLONE [Concomitant]
     Indication: CROHN^S DISEASE
     Dosage: FROM 10 TO 5 MG DAILY
     Dates: end: 2013
  5. PREDNISOLONE [Concomitant]
     Dates: start: 2013
  6. AZATHIOPRINE [Concomitant]
     Indication: CROHN^S DISEASE

REACTIONS (1)
  - Intestinal fistula [Unknown]
